FAERS Safety Report 9244060 (Version 1)
Quarter: 2013Q1

REPORT INFORMATION
  Report Type: Spontaneous
  Country: US (occurrence: None)
  Receive Date: 20121123
  Receipt Date: 20121123
  Transmission Date: 20140127
  Serious: Yes (Hospitalization)
  Sender: FDA-Public Use
  Company Number: 357978

PATIENT
  Age: 51 Year
  Sex: Female
  Weight: 139.7 kg

DRUGS (5)
  1. VICTOZA [Suspect]
     Indication: TYPE 2 DIABETES MELLITUS
     Route: 058
     Dates: start: 20120731
  2. LOTREL (AMLODIPINE BESILATE, BENAZEPRIL HYDROCHLORIDE) [Concomitant]
  3. CRESTOR (ROSUVASTATIN CALCIUM) [Concomitant]
  4. CLONIDINE (CLONIDINE) [Concomitant]
  5. LASIX /00032601/(FUROSEMIDE) [Concomitant]

REACTIONS (1)
  - Overdose [None]
